FAERS Safety Report 25679498 (Version 2)
Quarter: 2025Q3

REPORT INFORMATION
  Report Type: Spontaneous
  Country: US (occurrence: US)
  Receive Date: 20250814
  Receipt Date: 20250903
  Transmission Date: 20251021
  Serious: Yes (Life-Threatening, Hospitalization)
  Sender: TEVA
  Company Number: US-TEVA-VS-3359833

PATIENT
  Age: 23 Year
  Sex: Female

DRUGS (7)
  1. EPINEPHRINE [Suspect]
     Active Substance: EPINEPHRINE
     Indication: Bradycardia
     Route: 065
  2. ATENOLOL [Suspect]
     Active Substance: ATENOLOL
     Indication: Postural orthostatic tachycardia syndrome
     Route: 065
  3. ATENOLOL [Suspect]
     Active Substance: ATENOLOL
     Indication: Postural orthostatic tachycardia syndrome
     Route: 048
  4. IVABRADINE [Suspect]
     Active Substance: IVABRADINE
     Indication: Postural orthostatic tachycardia syndrome
     Route: 065
  5. IVABRADINE [Suspect]
     Active Substance: IVABRADINE
     Indication: Postural orthostatic tachycardia syndrome
     Route: 048
  6. ATROPINE [Suspect]
     Active Substance: ATROPINE
     Indication: Bradycardia
     Route: 065
  7. DEVICE [Suspect]
     Active Substance: DEVICE

REACTIONS (8)
  - Toxicity to various agents [Recovered/Resolved]
  - Gastric hypomotility [Unknown]
  - Bradycardia [Recovered/Resolved]
  - Intentional overdose [Unknown]
  - Hypotension [Recovered/Resolved]
  - Fatigue [Recovered/Resolved]
  - Off label use [Unknown]
  - Therapeutic product effect delayed [Unknown]
